FAERS Safety Report 13697282 (Version 1)
Quarter: 2017Q2

REPORT INFORMATION
  Report Type: Spontaneous
  Country: US (occurrence: US)
  Receive Date: 20170627
  Receipt Date: 20170627
  Transmission Date: 20170830
  Serious: Yes (Hospitalization)
  Sender: FDA-Public Use
  Company Number: None

PATIENT
  Age: 81 Year
  Sex: Male

DRUGS (16)
  1. IRON [Concomitant]
     Active Substance: IRON
  2. SPIRONOLACT [Concomitant]
  3. LISINOPRIL. [Concomitant]
     Active Substance: LISINOPRIL
  4. TUMS EX [Concomitant]
     Active Substance: CALCIUM CARBONATE
  5. AMLODIPINE [Concomitant]
     Active Substance: AMLODIPINE BESYLATE
  6. HYDRALAZINE [Concomitant]
     Active Substance: HYDRALAZINE HYDROCHLORIDE
  7. MELATONIN [Concomitant]
     Active Substance: MELATONIN
  8. LONSURF [Suspect]
     Active Substance: TIPIRACIL HYDROCHLORIDE\TRIFLURIDINE
     Indication: COLON CANCER
     Route: 048
     Dates: start: 20170525
  9. CALCIUM [Concomitant]
     Active Substance: CALCIUM
  10. CRESTOR [Concomitant]
     Active Substance: ROSUVASTATIN CALCIUM
  11. VITAMIN D3 [Concomitant]
     Active Substance: CHOLECALCIFEROL
  12. VITAMIN D [Concomitant]
     Active Substance: CHOLECALCIFEROL
  13. PROBIOTIC [Concomitant]
     Active Substance: PROBIOTICS NOS
  14. CLONIDINE. [Concomitant]
     Active Substance: CLONIDINE
  15. FUROSEMIDE. [Concomitant]
     Active Substance: FUROSEMIDE
  16. PANTOPRAZOLE [Concomitant]
     Active Substance: PANTOPRAZOLE

REACTIONS (1)
  - Duodenal ulcer [None]
